FAERS Safety Report 5473714-2 (Version None)
Quarter: 2007Q3

REPORT INFORMATION
  Report Type: 
  Country: None (occurrence: None)
  Receive Date: 20070831
  Receipt Date: 20070612
  Transmission Date: 20080115
  Serious: No
  Sender: FDA-Public Use
  Company Number: 242889

PATIENT
  Age: 76 Year
  Sex: Female

DRUGS (2)
  1. LUCENTIS [Suspect]
     Indication: MACULAR DEGENERATION
     Dosage: 1/MONTH
  2. LIPITOR [Concomitant]

REACTIONS (2)
  - EYE DISORDER [None]
  - MICTURITION DISORDER [None]
